FAERS Safety Report 4354957-8 (Version None)
Quarter: 2004Q2

REPORT INFORMATION
  Report Type: 
  Country: None (occurrence: None)
  Receive Date: 20040504
  Receipt Date: 20040427
  Transmission Date: 20050107
  Serious: Yes (Hospitalization)
  Sender: FDA-Public Use
  Company Number: 2004UW05607

PATIENT
  Age: 70 Year
  Sex: Female
  Weight: 56.6996 kg

DRUGS (14)
  1. NOLVADEX [Suspect]
     Indication: BREAST CANCER
     Dosage: 20 MG QD PO
     Route: 048
     Dates: start: 19971120, end: 20021121
  2. ARIMIDEX [Suspect]
     Indication: BREAST CANCER
     Dosage: 1 MG QD PO
     Route: 048
     Dates: start: 19971201, end: 20021121
  3. VICODIN [Concomitant]
  4. CELEBREX [Concomitant]
  5. PROTONIX [Concomitant]
  6. TOPROL-XL [Concomitant]
  7. ALPRAZOLAM [Concomitant]
  8. PAXIL [Concomitant]
  9. ASPIRIN [Concomitant]
  10. BETOPTIC [Concomitant]
  11. ELAVIL [Concomitant]
  12. FOSAMAX [Concomitant]
  13. VASERETIC [Concomitant]
  14. MAXZIDE [Concomitant]

REACTIONS (16)
  - ABASIA [None]
  - ARTHRALGIA [None]
  - BACK PAIN [None]
  - CONDITION AGGRAVATED [None]
  - DERMATITIS EXFOLIATIVE [None]
  - DIZZINESS [None]
  - INTERVERTEBRAL DISC PROTRUSION [None]
  - LACERATION [None]
  - OSTEOPOROSIS [None]
  - RADICULOPATHY [None]
  - SKIN ATROPHY [None]
  - SKIN IRRITATION [None]
  - SPINAL COLUMN STENOSIS [None]
  - UPPER LIMB FRACTURE [None]
  - URTICARIA [None]
  - VULVOVAGINAL DRYNESS [None]
